FAERS Safety Report 17268421 (Version 3)
Quarter: 2020Q1

REPORT INFORMATION
  Report Type: Spontaneous
  Country: NG (occurrence: NG)
  Receive Date: 20200114
  Receipt Date: 20200327
  Transmission Date: 20200409
  Serious: Yes (Congenital Anomaly, Other)
  Sender: FDA-Public Use
  Company Number: NG-MYLANLABS-2020M1004305

PATIENT

DRUGS (3)
  1. TENOFOVIR DISOPROXIL [Suspect]
     Active Substance: TENOFOVIR DISOPROXIL
     Indication: RETROVIRAL INFECTION
     Dosage: UNK
     Route: 064
  2. LAMIVUDINE. [Suspect]
     Active Substance: LAMIVUDINE
     Indication: RETROVIRAL INFECTION
     Dosage: UNK
     Route: 064
  3. EFAVIRENZ. [Suspect]
     Active Substance: EFAVIRENZ
     Indication: RETROVIRAL INFECTION
     Dosage: UNK
     Route: 064

REACTIONS (2)
  - Foetal exposure during pregnancy [Unknown]
  - Congenital hydrocephalus [Not Recovered/Not Resolved]
